FAERS Safety Report 19548039 (Version 1)
Quarter: 2021Q3

REPORT INFORMATION
  Report Type: Spontaneous
  Country: GB (occurrence: GB)
  Receive Date: 20210715
  Receipt Date: 20210715
  Transmission Date: 20211014
  Serious: Yes (Other)
  Sender: FDA-Public Use
  Company Number: GB-ADVANZ PHARMA-202107004954

PATIENT

DRUGS (2)
  1. PREDNISOLONE. [Suspect]
     Active Substance: PREDNISOLONE
     Indication: ECZEMA
     Dosage: UNK
  2. ASTRAZENECA COVID?19 VACCINE [Suspect]
     Active Substance: AZD-1222
     Dosage: DOSE 1
     Dates: start: 2021

REACTIONS (9)
  - Eczema [Recovered/Resolved]
  - Eczema asteatotic [Recovered/Resolved]
  - Migraine [Recovered/Resolved]
  - Screaming [Recovered/Resolved]
  - Lymphadenopathy [Unknown]
  - Pain [Unknown]
  - Scratch [Unknown]
  - Pruritus [Recovered/Resolved]
  - Crying [Recovered/Resolved]

NARRATIVE: CASE EVENT DATE: 20210421
